FAERS Safety Report 9914576 (Version 1)
Quarter: 2014Q1

REPORT INFORMATION
  Report Type: Spontaneous
  Country: NL (occurrence: NL)
  Receive Date: 20140220
  Receipt Date: 20140220
  Transmission Date: 20141002
  Serious: Yes (Life-Threatening, Hospitalization, Other)
  Sender: FDA-Public Use
  Company Number: NL-PFIZER INC-2014049017

PATIENT
  Age: 38 Year
  Sex: Male
  Weight: 75 kg

DRUGS (6)
  1. CISPLATIN [Suspect]
     Indication: TESTIS CANCER
     Dosage: DAY 1 - 5 DAILY 42 MG
     Route: 042
     Dates: start: 20140110
  2. BLEOMYCIN [Suspect]
     Indication: TESTIS CANCER
     Dosage: DAY 2 30 USP
     Route: 042
     Dates: start: 20140111, end: 20140117
  3. ETOPOSIDE [Suspect]
     Indication: TESTIS CANCER
     Dosage: DAY 1-5 DAILY 209 MG
     Route: 042
     Dates: start: 20140110
  4. OMEPRAZOL [Concomitant]
     Dosage: 20 MG, TWICE DAILY
     Route: 048
  5. PRUNACOLON SIROOP [Concomitant]
     Dosage: 10ML ONCE DAILY, IF REQUIRED TWICE DAILY 10ML (10 ML,1 IN 1 D)
     Route: 048
  6. ANDROGEL [Concomitant]
     Dosage: 50 MG, 1X/DAY
     Route: 048

REACTIONS (4)
  - Arterial thrombosis [Recovering/Resolving]
  - Cerebral infarction [Recovering/Resolving]
  - Hemiparesis [Recovering/Resolving]
  - Aphasia [Recovering/Resolving]
